FAERS Safety Report 9055592 (Version 1)
Quarter: 2013Q1

REPORT INFORMATION
  Report Type: Spontaneous
  Country: AU (occurrence: AU)
  Receive Date: 20130206
  Receipt Date: 20130206
  Transmission Date: 20140127
  Serious: Yes (Other)
  Sender: FDA-Public Use
  Company Number: AU-NICOBRDEVP-2013-01528

PATIENT
  Age: 41 None
  Sex: Male

DRUGS (4)
  1. LAMOTRIGINE (UNKNOWN) [Suspect]
     Indication: AFFECTIVE DISORDER
     Dosage: 150 MG, DAILY
     Route: 065
  2. NALTREXONE [Suspect]
     Indication: PRODUCT USED FOR UNKNOWN INDICATION
     Dosage: UNK, UNKNOWN
     Route: 065
  3. ANTABUSE [Suspect]
     Indication: PRODUCT USED FOR UNKNOWN INDICATION
     Dosage: 100 MG, DAILY
     Route: 065
  4. LOVAN [Suspect]
     Indication: AFFECTIVE DISORDER
     Dosage: UNK, UNKNOWN
     Route: 065

REACTIONS (3)
  - Sedation [Unknown]
  - Fatigue [Unknown]
  - Hypersomnia [Unknown]
